FAERS Safety Report 20676349 (Version 2)
Quarter: 2022Q2

REPORT INFORMATION
  Report Type: Report from Study
  Country: DE (occurrence: DE)
  Receive Date: 20220405
  Receipt Date: 20220624
  Transmission Date: 20220721
  Serious: Yes (Hospitalization, Other)
  Sender: FDA-Public Use
  Company Number: DE-TAKEDA-2022TUS022199

PATIENT
  Age: 3 Year
  Sex: Male

DRUGS (49)
  1. TEDUGLUTIDE [Suspect]
     Active Substance: TEDUGLUTIDE
     Indication: Short-bowel syndrome
     Dosage: 0.5 MILLIGRAM, QD
     Route: 042
     Dates: start: 20201015, end: 20210615
  2. TEDUGLUTIDE [Suspect]
     Active Substance: TEDUGLUTIDE
     Indication: Short-bowel syndrome
     Dosage: 0.5 MILLIGRAM, QD
     Route: 042
     Dates: start: 20201015, end: 20210615
  3. TEDUGLUTIDE [Suspect]
     Active Substance: TEDUGLUTIDE
     Indication: Short-bowel syndrome
     Dosage: 0.5 MILLIGRAM, QD
     Route: 042
     Dates: start: 20201015, end: 20210615
  4. TEDUGLUTIDE [Suspect]
     Active Substance: TEDUGLUTIDE
     Indication: Short-bowel syndrome
     Dosage: 0.5 MILLIGRAM, QD
     Route: 042
     Dates: start: 20201015, end: 20210615
  5. TEDUGLUTIDE [Suspect]
     Active Substance: TEDUGLUTIDE
     Dosage: 0.5 MILLIGRAM, QD
     Route: 042
     Dates: start: 20210706
  6. TEDUGLUTIDE [Suspect]
     Active Substance: TEDUGLUTIDE
     Dosage: 0.5 MILLIGRAM, QD
     Route: 042
     Dates: start: 20210706
  7. TEDUGLUTIDE [Suspect]
     Active Substance: TEDUGLUTIDE
     Dosage: 0.5 MILLIGRAM, QD
     Route: 042
     Dates: start: 20210706
  8. TEDUGLUTIDE [Suspect]
     Active Substance: TEDUGLUTIDE
     Dosage: 0.5 MILLIGRAM, QD
     Route: 042
     Dates: start: 20210706
  9. MELATONIN [Concomitant]
     Active Substance: MELATONIN
     Indication: Insomnia
     Dosage: 5 MILLIGRAM, QD
     Route: 048
     Dates: start: 20210823
  10. MELATONIN [Concomitant]
     Active Substance: MELATONIN
     Indication: Restlessness
  11. AMLODIPINE BESYLATE [Concomitant]
     Active Substance: AMLODIPINE BESYLATE
     Indication: Hypertension
     Dosage: 2.50 MILLIGRAM, BID
     Route: 048
     Dates: start: 20210823
  12. AMLODIPINE BESYLATE [Concomitant]
     Active Substance: AMLODIPINE BESYLATE
     Dosage: UNK
  13. OMEPRAZOLE [Concomitant]
     Active Substance: OMEPRAZOLE
     Indication: Antacid therapy
     Dosage: 10.00 MILLIGRAM, BID
     Route: 048
     Dates: start: 20210823
  14. OMEPRAZOLE [Concomitant]
     Active Substance: OMEPRAZOLE
     Dosage: 5 MILLIGRAM, QD
     Route: 048
     Dates: start: 20190807, end: 20200618
  15. OMEPRAZOLE [Concomitant]
     Active Substance: OMEPRAZOLE
     Dosage: 8 UNK
     Route: 048
     Dates: start: 20200619, end: 20210831
  16. OMEPRAZOLE [Concomitant]
     Active Substance: OMEPRAZOLE
     Dosage: 10 UNK
     Route: 048
     Dates: start: 20200901, end: 20210414
  17. URSODIOL [Concomitant]
     Active Substance: URSODIOL
     Indication: Bile acid malabsorption
     Dosage: 150.00 MILLIGRAM, BID
     Route: 048
     Dates: start: 20210823
  18. URSODIOL [Concomitant]
     Active Substance: URSODIOL
     Dosage: 50 UNK
     Route: 048
     Dates: start: 20190807, end: 20191022
  19. URSODIOL [Concomitant]
     Active Substance: URSODIOL
     Dosage: 60 UNK
     Route: 048
     Dates: start: 20191023, end: 20200618
  20. URSODIOL [Concomitant]
     Active Substance: URSODIOL
     Dosage: 90 UNK
     Route: 048
     Dates: start: 20200619, end: 20200831
  21. URSODIOL [Concomitant]
     Active Substance: URSODIOL
     Dosage: 100 UNK
     Route: 048
     Dates: start: 20200901, end: 20210822
  22. URSODIOL [Concomitant]
     Active Substance: URSODIOL
     Dosage: 150 UNK
     Route: 048
     Dates: start: 20210823
  23. KONAKION [Concomitant]
     Active Substance: PHYTONADIONE
     Indication: Haemorrhage prophylaxis
     Dosage: 2 MILLIGRAM, QD
     Route: 042
     Dates: start: 20190807, end: 20191022
  24. KONAKION [Concomitant]
     Active Substance: PHYTONADIONE
     Dosage: 3 MILLIGRAM, QD
     Route: 042
     Dates: start: 20191023
  25. ORGARAN [Concomitant]
     Active Substance: DANAPAROID SODIUM
     Indication: Heparin-induced thrombocytopenia
     Dosage: 100 INTERNATIONAL UNIT, BID
     Route: 058
     Dates: start: 20190705, end: 20191022
  26. ORGARAN [Concomitant]
     Active Substance: DANAPAROID SODIUM
     Dosage: 130 INTERNATIONAL UNIT, BID
     Route: 058
     Dates: start: 20191023, end: 20200618
  27. ORGARAN [Concomitant]
     Active Substance: DANAPAROID SODIUM
     Dosage: 140 INTERNATIONAL UNIT, BID
     Route: 058
     Dates: start: 20200619, end: 20200704
  28. ORGARAN [Concomitant]
     Active Substance: DANAPAROID SODIUM
     Dosage: 160 INTERNATIONAL UNIT
     Route: 058
     Dates: start: 20200705, end: 20200831
  29. ORGARAN [Concomitant]
     Active Substance: DANAPAROID SODIUM
     Dosage: 180 INTERNATIONAL UNIT
     Route: 058
     Dates: start: 20200901, end: 20201019
  30. ORGARAN [Concomitant]
     Active Substance: DANAPAROID SODIUM
     Dosage: 200 INTERNATIONAL UNIT, BID
     Route: 058
     Dates: start: 20201020, end: 20210823
  31. VITAMIN D [Concomitant]
     Active Substance: VITAMIN D NOS
     Indication: Vitamin D deficiency
     Dosage: 1000 INTERNATIONAL UNIT, QD
     Route: 048
     Dates: start: 20190807, end: 20201019
  32. VITAMIN D [Concomitant]
     Active Substance: VITAMIN D NOS
     Dosage: 2000 INTERNATIONAL UNIT
     Route: 048
     Dates: start: 20201020
  33. VANCOMYCIN [Concomitant]
     Active Substance: VANCOMYCIN
     Indication: Sepsis
     Dosage: 120 MILLIGRAM, QID
     Route: 042
     Dates: start: 20201002, end: 20201002
  34. VANCOMYCIN [Concomitant]
     Active Substance: VANCOMYCIN
     Indication: Device related infection
     Dosage: 120 MILLIGRAM, TID
     Route: 042
     Dates: start: 20201003, end: 20201012
  35. VANCOMYCIN [Concomitant]
     Active Substance: VANCOMYCIN
     Dosage: 120 MILLIGRAM, QD
     Route: 042
     Dates: start: 20201013, end: 20201013
  36. VANCOMYCIN [Concomitant]
     Active Substance: VANCOMYCIN
     Dosage: 150 MILLIGRAM, BID
     Route: 042
     Dates: start: 20210515, end: 20210704
  37. VANCOMYCIN [Concomitant]
     Active Substance: VANCOMYCIN
     Dosage: 300 MILLIGRAM, TID
     Route: 042
     Dates: start: 202109, end: 20210930
  38. MEROPENEM [Concomitant]
     Active Substance: MEROPENEM
     Indication: Sepsis
     Dosage: 200 MILLIGRAM, TID
     Route: 042
     Dates: start: 20201002, end: 20201012
  39. MEROPENEM [Concomitant]
     Active Substance: MEROPENEM
     Indication: Device related infection
     Dosage: 200 MILLIGRAM, QID
     Route: 042
     Dates: start: 20201013, end: 20201013
  40. MEROPENEM [Concomitant]
     Active Substance: MEROPENEM
     Dosage: 200 MILLIGRAM, QD
     Route: 042
     Dates: start: 20201014, end: 20201014
  41. MEROPENEM [Concomitant]
     Active Substance: MEROPENEM
     Dosage: 220 UNK
     Route: 042
     Dates: start: 20210515, end: 20210610
  42. MEROPENEM [Concomitant]
     Active Substance: MEROPENEM
     Dosage: 220 UNK
     Route: 042
     Dates: start: 20210624, end: 20210705
  43. MEROPENEM [Concomitant]
     Active Substance: MEROPENEM
     Dosage: 280 UNK
     Route: 042
     Dates: start: 202109, end: 20210930
  44. METRONIDAZOLE [Concomitant]
     Active Substance: METRONIDAZOLE
     Indication: Sepsis
     Dosage: 100 MILLIGRAM, TID
     Route: 042
     Dates: start: 20210515, end: 20210518
  45. LINEZOLID [Concomitant]
     Active Substance: LINEZOLID
     Indication: Sepsis
     Dosage: 100 MILLIGRAM, TID
     Route: 042
     Dates: start: 20210516, end: 20210520
  46. CEFTAZIDIME [Concomitant]
     Active Substance: CEFTAZIDIME
     Indication: Sepsis
     Dosage: 20 MILLIGRAM
     Route: 042
     Dates: start: 20210521, end: 20210604
  47. PIPERACILLIN AND TAZOBACTAM [Concomitant]
     Active Substance: PIPERACILLIN SODIUM\TAZOBACTAM SODIUM
     Indication: Sepsis
     Dosage: 730 MILLIGRAM, TID
     Route: 042
     Dates: start: 20210610, end: 20210624
  48. FLUCONAZOL A [Concomitant]
     Indication: Sepsis
     Dosage: 60 MILLIGRAM, QD
     Route: 042
     Dates: start: 20210616, end: 20210623
  49. Baclofen bp [Concomitant]
     Dosage: 8 MILLIGRAM, TID
     Route: 048
     Dates: start: 202107

REACTIONS (1)
  - Mental disorder [Recovered/Resolved]

NARRATIVE: CASE EVENT DATE: 20220331
